FAERS Safety Report 12600526 (Version 1)
Quarter: 2016Q3

REPORT INFORMATION
  Report Type: Report from Study
  Country: US (occurrence: US)
  Receive Date: 20160727
  Receipt Date: 20160727
  Transmission Date: 20161109
  Serious: Yes (Other)
  Sender: FDA-Public Use
  Company Number: US-ABBVIE-16K-163-1682696-00

PATIENT
  Age: 25 Year
  Sex: Male

DRUGS (3)
  1. HUMIRA [Suspect]
     Active Substance: ADALIMUMAB
     Route: 058
     Dates: start: 20160712
  2. HUMIRA [Suspect]
     Active Substance: ADALIMUMAB
     Indication: CROHN^S DISEASE
     Route: 058
     Dates: start: 2012, end: 2013
  3. PREDNISONE. [Suspect]
     Active Substance: PREDNISONE
     Indication: PRODUCT USED FOR UNKNOWN INDICATION
     Route: 065

REACTIONS (21)
  - Muscle strain [Unknown]
  - Arthralgia [Unknown]
  - Ileectomy [Unknown]
  - Infection [Unknown]
  - Myalgia [Unknown]
  - Contusion [Recovered/Resolved]
  - Dry mouth [Unknown]
  - Tremor [Unknown]
  - Fatigue [Unknown]
  - Renal haematoma [Recovered/Resolved]
  - Lymphadenopathy [Unknown]
  - Restlessness [Unknown]
  - Insomnia [Unknown]
  - Renal impairment [Unknown]
  - Cataract [Unknown]
  - Internal haemorrhage [Recovered/Resolved]
  - Incorrect dose administered [Unknown]
  - Post procedural complication [Recovered/Resolved]
  - Anxiety [Unknown]
  - Wrong technique in product usage process [Unknown]
  - Body temperature decreased [Unknown]

NARRATIVE: CASE EVENT DATE: 20160712
